FAERS Safety Report 10512998 (Version 2)
Quarter: 2014Q4

REPORT INFORMATION
  Report Type: Report from Study
  Country: US (occurrence: US)
  Receive Date: 20141013
  Receipt Date: 20141120
  Transmission Date: 20150528
  Serious: Yes (Hospitalization)
  Sender: FDA-Public Use
  Company Number: US-BIOGENIDEC-2014BI104826

PATIENT
  Age: 34 Year
  Sex: Female

DRUGS (3)
  1. AVONEX [Suspect]
     Active Substance: INTERFERON BETA-1A
     Indication: MULTIPLE SCLEROSIS
     Route: 030
     Dates: start: 2003
  2. AVONEX [Suspect]
     Active Substance: INTERFERON BETA-1A
     Indication: MULTIPLE SCLEROSIS
     Route: 030
     Dates: start: 20090413, end: 201312
  3. AVONEX [Suspect]
     Active Substance: INTERFERON BETA-1A
     Indication: MULTIPLE SCLEROSIS
     Route: 030
     Dates: start: 20040412, end: 20061212

REACTIONS (6)
  - Weight decreased [Unknown]
  - Hallucination, auditory [Unknown]
  - Hypophagia [Unknown]
  - Burning sensation [Unknown]
  - Paranoia [Unknown]
  - Dehydration [Unknown]

NARRATIVE: CASE EVENT DATE: 201409
